FAERS Safety Report 17360314 (Version 1)
Quarter: 2020Q1

REPORT INFORMATION
  Report Type: Spontaneous
  Country: CN (occurrence: CN)
  Receive Date: 20200203
  Receipt Date: 20200203
  Transmission Date: 20200409
  Serious: Yes (Other)
  Sender: FDA-Public Use
  Company Number: CN-ELI_LILLY_AND_COMPANY-CN202001011103

PATIENT
  Age: 82 Year
  Sex: Male

DRUGS (2)
  1. HUMALOG MIX50/50 [Suspect]
     Active Substance: INSULIN LISPRO
     Dosage: 8 INTERNATIONAL UNIT, DAILY
     Route: 058
     Dates: start: 20190404, end: 20200109
  2. HUMALOG MIX50/50 [Suspect]
     Active Substance: INSULIN LISPRO
     Indication: TYPE 2 DIABETES MELLITUS
     Dosage: 10 INTERNATIONAL UNIT, DAILY
     Route: 058
     Dates: start: 20190404, end: 20200109

REACTIONS (2)
  - Hypoglycaemia [Recovering/Resolving]
  - Gait inability [Recovering/Resolving]
